FAERS Safety Report 12788171 (Version 2)
Quarter: 2016Q4

REPORT INFORMATION
  Report Type: Spontaneous
  Country: US (occurrence: US)
  Receive Date: 20160928
  Receipt Date: 20161113
  Transmission Date: 20170207
  Serious: No
  Sender: FDA-Public Use
  Company Number: ALCN2016US006609

PATIENT
  Age: 40 Year
  Sex: Female

DRUGS (1)
  1. NAPHCON A [Suspect]
     Active Substance: NAPHAZOLINE HYDROCHLORIDE\PHENIRAMINE MALEATE
     Indication: EYE ALLERGY
     Dosage: 2 GTT, PRN
     Route: 047

REACTIONS (2)
  - Pain in extremity [Recovered/Resolved]
  - Arthralgia [Recovered/Resolved]

NARRATIVE: CASE EVENT DATE: 20160927
